FAERS Safety Report 25133999 (Version 2)
Quarter: 2025Q2

REPORT INFORMATION
  Report Type: Report from Study
  Country: US (occurrence: US)
  Receive Date: 20250328
  Receipt Date: 20250522
  Transmission Date: 20250716
  Serious: Yes (Hospitalization, Other)
  Sender: pharmaAND
  Company Number: US-Pharmaand-2024001230

PATIENT
  Sex: Female

DRUGS (6)
  1. RUBRACA [Suspect]
     Active Substance: RUCAPARIB CAMSYLATE
     Indication: Ovarian cancer
     Dosage: 300 MG TWICE DAILY
     Route: 048
     Dates: start: 201710
  2. RUBRACA [Suspect]
     Active Substance: RUCAPARIB CAMSYLATE
     Dosage: 300 MG TWICE DAILY. RESTARTED AFTER TREATMENT INTERRUPTION.
     Route: 048
     Dates: start: 202504
  3. COLCHICINE [Concomitant]
     Active Substance: COLCHICINE
  4. VITAMIN B12 [Concomitant]
     Active Substance: CYANOCOBALAMIN
  5. MAGNESIUM [Concomitant]
     Active Substance: MAGNESIUM
  6. VITAMIN D NOS [Concomitant]
     Active Substance: CHOLECALCIFEROL\ERGOCALCIFEROL

REACTIONS (11)
  - Viral pericarditis [Recovered/Resolved]
  - Blepharitis [Unknown]
  - Emergency care examination [Unknown]
  - Paraesthesia [Not Recovered/Not Resolved]
  - Dyspnoea [Unknown]
  - Arthralgia [Unknown]
  - Chest pain [Unknown]
  - Anaemia [Unknown]
  - Hepatic enzyme increased [Unknown]
  - Peripheral swelling [Unknown]
  - Constipation [Unknown]

NARRATIVE: CASE EVENT DATE: 20250101
